FAERS Safety Report 23456379 (Version 1)
Quarter: 2024Q1

REPORT INFORMATION
  Report Type: Spontaneous
  Country: US (occurrence: US)
  Receive Date: 20240130
  Receipt Date: 20240130
  Transmission Date: 20240410
  Serious: No
  Sender: FDA-Public Use
  Company Number: US-TAKEDA-2024TUS008195

PATIENT
  Sex: Female
  Weight: 31.24 kg

DRUGS (1)
  1. TAKHZYRO [Suspect]
     Active Substance: LANADELUMAB-FLYO
     Indication: Angioedema
     Dosage: UNK
     Route: 065

REACTIONS (2)
  - Product distribution issue [Unknown]
  - Inappropriate schedule of product administration [Unknown]
